FAERS Safety Report 7989038-5 (Version None)
Quarter: 2011Q4

REPORT INFORMATION
  Report Type: 
  Country: None (occurrence: None)
  Receive Date: 20111219
  Receipt Date: 20111206
  Transmission Date: 20120403
  Serious: Yes (Other)
  Sender: FDA-Public Use
  Company Number: GB-RANBAXY-2011R1-41458

PATIENT
  Age: 30 Year
  Sex: Female

DRUGS (2)
  1. CODEINE SULFATE [Suspect]
     Indication: PRODUCT USED FOR UNKNOWN INDICATION
     Dosage: UNK
     Route: 065
  2. ACETAMINOPHEN [Suspect]
     Indication: PRODUCT USED FOR UNKNOWN INDICATION
     Dosage: 12 G, UNK
     Route: 048

REACTIONS (6)
  - METABOLIC ACIDOSIS [None]
  - HYPOTHERMIA [None]
  - DEPRESSED LEVEL OF CONSCIOUSNESS [None]
  - TOXICITY TO VARIOUS AGENTS [None]
  - OVERDOSE [None]
  - ANURIA [None]
